FAERS Safety Report 12668842 (Version 2)
Quarter: 2016Q3

REPORT INFORMATION
  Report Type: Report from Study
  Country: US (occurrence: US)
  Receive Date: 20160819
  Receipt Date: 20160912
  Transmission Date: 20161109
  Serious: Yes (Death, Hospitalization, Other)
  Sender: FDA-Public Use
  Company Number: US-JNJFOC-20160809994

PATIENT
  Age: 71 Year
  Sex: Male

DRUGS (2)
  1. IMBRUVICA [Suspect]
     Active Substance: IBRUTINIB
     Indication: CHRONIC LYMPHOCYTIC LEUKAEMIA
     Route: 048
     Dates: start: 20160701, end: 20160806
  2. LASIX [Concomitant]
     Active Substance: FUROSEMIDE

REACTIONS (9)
  - Pulmonary alveolar haemorrhage [Not Recovered/Not Resolved]
  - Haemoptysis [Not Recovered/Not Resolved]
  - Malaise [Unknown]
  - Petechiae [Not Recovered/Not Resolved]
  - Death [Fatal]
  - Renal impairment [Unknown]
  - Dyspnoea [Not Recovered/Not Resolved]
  - Gout [Unknown]
  - Tremor [Not Recovered/Not Resolved]

NARRATIVE: CASE EVENT DATE: 2016
